FAERS Safety Report 4877030-9 (Version None)
Quarter: 2005Q4

REPORT INFORMATION
  Report Type: 
  Country: None (occurrence: None)
  Receive Date: 20051206
  Receipt Date: 20050816
  Transmission Date: 20060501
  Serious: No
  Sender: FDA-Public Use
  Company Number: USA0508105745

PATIENT
  Sex: Female

DRUGS (9)
  1. CYMBALTA [Suspect]
     Dosage: 60 MG
     Dates: start: 20050629
  2. EFFEXOR [Concomitant]
  3. LEVOTHYROXINE SODIUM [Concomitant]
  4. ESTRATEST [Concomitant]
  5. VIVELLE-DOT [Concomitant]
  6. TARKA [Concomitant]
  7. ZELNORM [Concomitant]
  8. DIFLUCAN (FLUCONAZOLE) [Concomitant]
  9. ELDERBERRY (SAMBUCUS NIGRA) [Concomitant]

REACTIONS (4)
  - DIZZINESS [None]
  - IRRITABILITY [None]
  - LYMPHADENOPATHY [None]
  - RASH PAPULAR [None]
